FAERS Safety Report 14468128 (Version 1)
Quarter: 2018Q1

REPORT INFORMATION
  Report Type: Spontaneous
  Country: US (occurrence: US)
  Receive Date: 20180131
  Receipt Date: 20180131
  Transmission Date: 20180509
  Serious: No
  Sender: FDA-Public Use
  Company Number: US-TEVA-755214ACC

PATIENT
  Sex: Female

DRUGS (1)
  1. NORETHINDRONE W/ETHINYLESTRADIOL [Suspect]
     Active Substance: ETHINYL ESTRADIOL\NORETHINDRONE
     Indication: CONTRACEPTION
     Dosage: DOSE STRENGTH:  1/35 1MG+35MCG

REACTIONS (1)
  - Hormone level abnormal [Unknown]
